FAERS Safety Report 22541024 (Version 1)
Quarter: 2023Q2

REPORT INFORMATION
  Report Type: Spontaneous
  Country: JP (occurrence: JP)
  Receive Date: 20230609
  Receipt Date: 20230609
  Transmission Date: 20230721
  Serious: Yes (Hospitalization)
  Sender: FDA-Public Use
  Company Number: JP-MYLANLABS-2023M1059435

PATIENT
  Age: 19 Year
  Sex: Female

DRUGS (4)
  1. AMLODIPINE [Suspect]
     Active Substance: AMLODIPINE BESYLATE
     Indication: Renovascular hypertension
     Dosage: 10 MILLIGRAM
     Route: 065
  2. BISOPROLOL [Suspect]
     Active Substance: BISOPROLOL
     Indication: Renovascular hypertension
     Dosage: 2.5 MILLIGRAM
     Route: 065
  3. NIFEDIPINE [Suspect]
     Active Substance: NIFEDIPINE
     Indication: Renovascular hypertension
     Dosage: 80 MILLIGRAM
     Route: 065
  4. AZOSEMIDE [Suspect]
     Active Substance: AZOSEMIDE
     Indication: Renovascular hypertension
     Dosage: 30 MILLIGRAM
     Route: 065

REACTIONS (1)
  - Drug ineffective [Unknown]
